FAERS Safety Report 17102074 (Version 1)
Quarter: 2019Q4

REPORT INFORMATION
  Report Type: Spontaneous
  Country: US (occurrence: US)
  Receive Date: 20191202
  Receipt Date: 20191202
  Transmission Date: 20200122
  Serious: No
  Sender: FDA-Public Use
  Company Number: US-GE HEALTHCARE LIFE SCIENCES-2019CSU001921

PATIENT
  Age: 75 Year
  Sex: Female

DRUGS (2)
  1. OMNIPAQUE [Suspect]
     Active Substance: IOHEXOL
     Indication: CARDIAC DISORDER
  2. OMNIPAQUE [Suspect]
     Active Substance: IOHEXOL
     Indication: TRANSCATHETER AORTIC VALVE IMPLANTATION
     Dosage: 100 ML, SINGLE
     Route: 042
     Dates: start: 20190402, end: 20190402

REACTIONS (2)
  - Throat tightness [Unknown]
  - Tremor [Unknown]

NARRATIVE: CASE EVENT DATE: 20190402
